FAERS Safety Report 7312729-6 (Version None)
Quarter: 2011Q1

REPORT INFORMATION
  Report Type: 
  Country: None (occurrence: None)
  Receive Date: 20110224
  Receipt Date: 20110214
  Transmission Date: 20110831
  Serious: Yes (Other)
  Sender: FDA-Public Use
  Company Number: US-BAYER-2011-015088

PATIENT
  Sex: Male

DRUGS (1)
  1. LEVITRA [Suspect]
     Indication: PRODUCT USED FOR UNKNOWN INDICATION
     Route: 048

REACTIONS (7)
  - FEELING ABNORMAL [None]
  - LIMB DISCOMFORT [None]
  - UNEVALUABLE EVENT [None]
  - HYPERAESTHESIA [None]
  - WEIGHT INCREASED [None]
  - MUSCULOSKELETAL STIFFNESS [None]
  - FEELING GUILTY [None]
